FAERS Safety Report 8247449-7 (Version None)
Quarter: 2012Q1

REPORT INFORMATION
  Report Type: 
  Country: None (occurrence: None)
  Receive Date: 20120330
  Receipt Date: 20090801
  Transmission Date: 20120608
  Serious: Yes (Death)
  Sender: FDA-Public Use
  Company Number: IT-CELGENEUS-083-21880-12010892

PATIENT

DRUGS (10)
  1. DURAGESIC-100 [Concomitant]
     Route: 065
  2. LANOXIN [Concomitant]
     Dosage: .125 MILLIGRAM
     Route: 065
     Dates: start: 20011026, end: 20090510
  3. REVLIMID [Suspect]
     Indication: MULTIPLE MYELOMA
     Dosage: 15 MILLIGRAM
     Route: 048
     Dates: start: 20090506, end: 20090509
  4. COUMADIN [Concomitant]
     Route: 065
  5. LORAZEPAM [Concomitant]
     Route: 065
  6. NUTRITIONAL SUPPORT [Concomitant]
     Route: 065
  7. DECADRON [Concomitant]
     Dosage: 24 MILLIGRAM
     Route: 048
     Dates: start: 20090506, end: 20090509
  8. ZESTORETIC [Concomitant]
     Dosage: 20 MILLIGRAM
     Route: 048
     Dates: start: 20011026, end: 20090510
  9. ANTACAL [Concomitant]
     Dosage: 5 MILLIGRAM
     Route: 048
     Dates: start: 20011026, end: 20090510
  10. LIMPIDEX [Concomitant]
     Dosage: 30 MILLIGRAM
     Route: 048
     Dates: start: 20081216, end: 20090510

REACTIONS (3)
  - NEUTROPENIA [None]
  - CARDIAC FAILURE [None]
  - BRONCHOPNEUMONIA [None]
